FAERS Safety Report 10214623 (Version 1)
Quarter: 2014Q2

REPORT INFORMATION
  Report Type: Spontaneous
  Country: IT (occurrence: IT)
  Receive Date: 20140603
  Receipt Date: 20140603
  Transmission Date: 20141212
  Serious: Yes (Hospitalization)
  Sender: FDA-Public Use
  Company Number: IT-VIIV HEALTHCARE LIMITED-B0999342A

PATIENT
  Age: 52 Year
  Sex: Male

DRUGS (4)
  1. LAMIVUDINE-HIV [Suspect]
     Indication: HIV INFECTION
     Dosage: 150MG TWICE PER DAY
     Route: 065
     Dates: start: 2007
  2. ZIDOVUDINE [Suspect]
     Indication: HIV INFECTION
     Dosage: 300MG TWICE PER DAY
     Route: 065
     Dates: start: 2007
  3. SAQUINAVIR [Suspect]
     Indication: HIV INFECTION
     Route: 065
     Dates: start: 2007
  4. RITONAVIR [Suspect]
     Indication: HIV INFECTION
     Dosage: 100MG PER DAY
     Route: 065
     Dates: start: 2007

REACTIONS (7)
  - Rhabdomyolysis [Recovered/Resolved]
  - Angina pectoris [Unknown]
  - Ischaemia [Unknown]
  - Asthenia [Unknown]
  - Myalgia [Unknown]
  - Blood creatine phosphokinase increased [Unknown]
  - Myoglobin blood increased [Unknown]
